FAERS Safety Report 7506098-6 (Version None)
Quarter: 2011Q2

REPORT INFORMATION
  Report Type: 
  Country: None (occurrence: None)
  Receive Date: 20110526
  Receipt Date: 20110519
  Transmission Date: 20111010
  Serious: Yes (Hospitalization, Disabling)
  Sender: FDA-Public Use
  Company Number: MX-SANOFI-AVENTIS-2011SA031604

PATIENT
  Age: 44 Year
  Sex: Female
  Weight: 85 kg

DRUGS (3)
  1. ALL OTHER THERAPEUTIC PRODUCTS [Concomitant]
  2. ARAVA [Suspect]
     Indication: RHEUMATOID ARTHRITIS
     Route: 048
     Dates: start: 20060101
  3. METHOTREXATE [Concomitant]
     Indication: RHEUMATOID ARTHRITIS
     Dosage: FREQ: 5 DAYS A WEEK
     Route: 048
     Dates: start: 20060101

REACTIONS (5)
  - DEVICE RELATED INFECTION [None]
  - ARTHRALGIA [None]
  - BODY TEMPERATURE INCREASED [None]
  - PATIENT-DEVICE INCOMPATIBILITY [None]
  - MEDICAL DEVICE COMPLICATION [None]
